FAERS Safety Report 14373015 (Version 5)
Quarter: 2018Q2

REPORT INFORMATION
  Report Type: Spontaneous
  Country: US (occurrence: US)
  Receive Date: 20180110
  Receipt Date: 20180420
  Transmission Date: 20180711
  Serious: Yes (Hospitalization, Other)
  Sender: FDA-Public Use
  Company Number: US-ACTELION-A-US2018-165544

PATIENT
  Age: 76 Year
  Sex: Male
  Weight: 102.95 kg

DRUGS (25)
  1. ADCIRCA [Concomitant]
     Active Substance: TADALAFIL
  2. PREDNISONE. [Concomitant]
     Active Substance: PREDNISONE
  3. FUROSEMIDE. [Concomitant]
     Active Substance: FUROSEMIDE
  4. CYCLOBENZAPRINE. [Concomitant]
     Active Substance: CYCLOBENZAPRINE
  5. LORAZEPAM. [Concomitant]
     Active Substance: LORAZEPAM
  6. CLOPIDOGREL [Concomitant]
     Active Substance: CLOPIDOGREL BISULFATE
  7. POTASSIUM CHLORIDE. [Concomitant]
     Active Substance: POTASSIUM CHLORIDE
  8. ANORO ELLIPTA [Concomitant]
     Active Substance: UMECLIDINIUM BROMIDE\VILANTEROL TRIFENATATE
  9. METOPROLOL. [Concomitant]
     Active Substance: METOPROLOL
  10. LOPERAMIDE [Concomitant]
     Active Substance: LOPERAMIDE
  11. UPTRAVI [Suspect]
     Active Substance: SELEXIPAG
     Indication: PULMONARY ARTERIAL HYPERTENSION
     Dosage: 400 MCG, BID
     Route: 048
  12. REMODULIN [Concomitant]
     Active Substance: TREPROSTINIL
  13. VENLAFAXINE [Concomitant]
     Active Substance: VENLAFAXINE HYDROCHLORIDE
  14. ROSUVASTATIN. [Concomitant]
     Active Substance: ROSUVASTATIN
  15. FERROUS SULFATE. [Concomitant]
     Active Substance: FERROUS SULFATE
  16. LANTUS [Concomitant]
     Active Substance: INSULIN GLARGINE
  17. K PHOS NEUTRAL [Concomitant]
     Active Substance: POTASSIUM PHOSPHATE, MONOBASIC\SODIUM PHOSPHATE, DIBASIC, ANHYDROUS\SODIUM PHOSPHATE, MONOBASIC, MONOHYDRATE
  18. ALBUTEROL. [Concomitant]
     Active Substance: ALBUTEROL
  19. VELETRI [Suspect]
     Active Substance: EPOPROSTENOL
     Indication: PULMONARY ARTERIAL HYPERTENSION
     Dosage: 17 NG/KG, PER MIN
     Route: 042
  20. MAGNESIUM OXIDE. [Concomitant]
     Active Substance: MAGNESIUM OXIDE
  21. METHYLPREDNISOLONE. [Concomitant]
     Active Substance: METHYLPREDNISOLONE
  22. OPSUMIT [Suspect]
     Active Substance: MACITENTAN
     Indication: PULMONARY ARTERIAL HYPERTENSION
     Dosage: 10 MG, QD
     Route: 048
     Dates: start: 20160315
  23. METFORMIN [Concomitant]
     Active Substance: METFORMIN HYDROCHLORIDE
  24. GABAPENTIN. [Concomitant]
     Active Substance: GABAPENTIN
  25. OMEPRAZOLE. [Concomitant]
     Active Substance: OMEPRAZOLE

REACTIONS (17)
  - Nasal congestion [Unknown]
  - Disease progression [Unknown]
  - Fluid retention [Unknown]
  - Fall [Unknown]
  - Asthenia [Unknown]
  - Cough [Unknown]
  - Chills [Unknown]
  - Oxygen saturation decreased [Unknown]
  - Device issue [Unknown]
  - Gastroenteritis viral [Unknown]
  - Malaise [Unknown]
  - Pulmonary arterial hypertension [Unknown]
  - Nasopharyngitis [Unknown]
  - Influenza [Unknown]
  - Cardiac failure congestive [Unknown]
  - Dyspnoea [Unknown]
  - Arthralgia [Unknown]

NARRATIVE: CASE EVENT DATE: 20180125
